FAERS Safety Report 13237471 (Version 2)
Quarter: 2017Q2

REPORT INFORMATION
  Report Type: Spontaneous
  Country: US (occurrence: US)
  Receive Date: 20170215
  Receipt Date: 20170525
  Transmission Date: 20170830
  Serious: Yes (Other)
  Sender: FDA-Public Use
  Company Number: US-009507513-1702USA005793

PATIENT
  Age: 34 Year
  Sex: Female
  Weight: 58.5 kg

DRUGS (4)
  1. BELSOMRA [Suspect]
     Active Substance: SUVOREXANT
     Indication: INSOMNIA
     Dosage: 1 PILL AT BEDTIME TAKEN BY MOUTH
     Route: 048
  2. NORA BE [Concomitant]
     Active Substance: NORETHINDRONE
     Dosage: 1 DF, QD (1 PILL/DAY)
     Route: 048
  3. TOPIRAMATE. [Concomitant]
     Active Substance: TOPIRAMATE
     Dosage: 2 DF, QD (2 TABLETS/DAY)
     Route: 048
  4. SERTRALINE HYDROCHLORIDE. [Concomitant]
     Active Substance: SERTRALINE HYDROCHLORIDE
     Dosage: 1 DF, QD (1 TABLET/DAY)
     Route: 048

REACTIONS (6)
  - Feeling abnormal [Recovered/Resolved]
  - Aphasia [Recovered/Resolved]
  - Memory impairment [Recovered/Resolved]
  - Drug ineffective [Recovered/Resolved]
  - Depressive symptom [Recovered/Resolved]
  - Crying [Recovered/Resolved]

NARRATIVE: CASE EVENT DATE: 20160119
